FAERS Safety Report 8912141 (Version 3)
Quarter: 2013Q2

REPORT INFORMATION
  Report Type: Spontaneous
  Country: US (occurrence: US)
  Receive Date: 20121115
  Receipt Date: 20130409
  Transmission Date: 20140414
  Serious: Yes (Hospitalization, Other)
  Sender: FDA-Public Use
  Company Number: US-009507513-1204USA01799

PATIENT
  Sex: Female
  Weight: 64.4 kg

DRUGS (5)
  1. FOSAMAX [Suspect]
     Indication: OSTEOPOROSIS
     Dosage: 10 MG, UNK
     Route: 048
     Dates: start: 1999, end: 200009
  2. FOSAMAX [Suspect]
     Dosage: 70 MG, UNK
     Route: 048
     Dates: start: 200010
  3. FOSAMAX [Suspect]
     Indication: OSTEOPOROSIS
     Dosage: 70 MG, UNK
     Route: 048
     Dates: start: 200812, end: 200911
  4. ALENDRONATE SODIUM [Suspect]
     Indication: OSTEOPOROSIS
     Dosage: 70 MG, UNK
     Route: 048
  5. VITAMINS (UNSPECIFIED) [Concomitant]
     Dosage: UNK, QD

REACTIONS (43)
  - Intramedullary rod insertion [Unknown]
  - Intramedullary rod insertion [Unknown]
  - Vascular operation [Unknown]
  - Nephrectomy [Unknown]
  - Hypoxia [Recovered/Resolved]
  - Stent placement [Unknown]
  - Urinary tract infection [Unknown]
  - Humerus fracture [Unknown]
  - Surgery [Unknown]
  - Fall [Unknown]
  - Lacunar infarction [Unknown]
  - Bradycardia [Recovered/Resolved]
  - Drug hypersensitivity [Recovered/Resolved]
  - Hypomagnesaemia [Unknown]
  - Femur fracture [Unknown]
  - Femur fracture [Unknown]
  - Anaemia [Unknown]
  - Blood albumin decreased [Unknown]
  - Post procedural constipation [Unknown]
  - Protein total decreased [Unknown]
  - Blister [Unknown]
  - Hypertension [Recovered/Resolved]
  - Blood sodium increased [Unknown]
  - Blood chloride increased [Unknown]
  - Low turnover osteopathy [Unknown]
  - Endodontic procedure [Unknown]
  - Stent placement [Unknown]
  - Tooth extraction [Unknown]
  - Oral surgery [Unknown]
  - Adverse event [Unknown]
  - Hypercholesterolaemia [Unknown]
  - Tooth extraction [Unknown]
  - Chronic obstructive pulmonary disease [Unknown]
  - Gastric polyps [Unknown]
  - Intermittent claudication [Unknown]
  - Osteoarthritis [Unknown]
  - Osteoarthritis [Unknown]
  - Hypertension [Unknown]
  - Complicated migraine [Unknown]
  - Peripheral arterial occlusive disease [Unknown]
  - Pain in extremity [Unknown]
  - Arthralgia [Unknown]
  - Gastrooesophageal reflux disease [Unknown]
